FAERS Safety Report 18996962 (Version 1)
Quarter: 2021Q1

REPORT INFORMATION
  Report Type: Spontaneous
  Country: US (occurrence: US)
  Receive Date: 20210310
  Receipt Date: 20210310
  Transmission Date: 20210420
  Serious: Yes (Hospitalization)
  Sender: FDA-Public Use
  Company Number: None

PATIENT
  Age: 26 Year
  Sex: Male

DRUGS (8)
  1. AMBRISENTAN 5MG TABLETS 30/BO: 5MG [Suspect]
     Active Substance: AMBRISENTAN
     Indication: PULMONARY ARTERIAL HYPERTENSION
     Route: 048
     Dates: start: 20201216
  2. QUETIAPINE. [Concomitant]
     Active Substance: QUETIAPINE
  3. K?TAB [Concomitant]
     Active Substance: POTASSIUM CHLORIDE
  4. UPTRAVI [Concomitant]
     Active Substance: SELEXIPAG
  5. LASIX [Concomitant]
     Active Substance: FUROSEMIDE
  6. BIKTARVY [Concomitant]
     Active Substance: BICTEGRAVIR SODIUM\EMTRICITABINE\TENOFOVIR ALAFENAMIDE FUMARATE
  7. ALBURTEROL HFA [Concomitant]
  8. TYLENOL [Concomitant]
     Active Substance: ACETAMINOPHEN

REACTIONS (4)
  - Weight increased [None]
  - Abdominal pain upper [None]
  - Fluid overload [None]
  - Congestive hepatopathy [None]

NARRATIVE: CASE EVENT DATE: 20210227
